FAERS Safety Report 10033124 (Version 1)
Quarter: 2014Q1

REPORT INFORMATION
  Report Type: Report from Study
  Country: US (occurrence: US)
  Receive Date: 20140324
  Receipt Date: 20140324
  Transmission Date: 20141002
  Serious: Yes (Death)
  Sender: FDA-Public Use
  Company Number: US-TEVA-469849USA

PATIENT
  Age: 48 Year
  Sex: Female

DRUGS (14)
  1. TRISENOX [Suspect]
     Indication: ACUTE PROMYELOCYTIC LEUKAEMIA
     Dosage: DAILY M-FX 4 WEEKS
     Route: 042
     Dates: start: 20140219, end: 20140303
  2. GEMTUZUMAB OZOGAMICIN [Suspect]
     Indication: ACUTE PROMYELOCYTIC LEUKAEMIA
     Dosage: 15.4 MILLIGRAM DAILY; 9MG/M2
     Route: 042
  3. TRETINOIN [Suspect]
     Indication: ACUTE PROMYELOCYTIC LEUKAEMIA
     Dosage: 90 MG/M2 DAILY; CYCLIC, 2 WEEKS ON/2 WEEKS OFF
     Route: 048
     Dates: start: 20140219, end: 20140303
  4. CASPOFUNGIN [Concomitant]
  5. DEXAMETHASONE [Concomitant]
  6. GABAPENTIN [Concomitant]
  7. INSULIN [Concomitant]
  8. LINEZOLID [Concomitant]
  9. MEPERIDINE [Concomitant]
  10. METFORMIN [Concomitant]
  11. METHYLPREDNISOLONE [Concomitant]
  12. METOPROLOL [Concomitant]
  13. PIPERACILLIN W/TAZOBACTAM [Concomitant]
  14. VALACICLOVIR [Concomitant]

REACTIONS (1)
  - Sepsis [Fatal]
